FAERS Safety Report 7789818-5 (Version None)
Quarter: 2011Q3

REPORT INFORMATION
  Report Type: 
  Country: None (occurrence: None)
  Receive Date: 20110930
  Receipt Date: 20101220
  Transmission Date: 20111222
  Serious: No
  Sender: FDA-Public Use
  Company Number: US-ASTRAZENECA-2008UW22602

PATIENT
  Age: 75 Year
  Sex: Female
  Weight: 90.7 kg

DRUGS (10)
  1. ARIMIDEX [Suspect]
     Route: 048
     Dates: start: 20050101, end: 20070101
  2. ATENOLOL [Concomitant]
  3. COZAAR [Concomitant]
  4. FEMARA [Concomitant]
  5. ARIMIDEX [Suspect]
     Indication: BREAST CANCER STAGE IV
     Route: 048
     Dates: start: 20030101
  6. VICODIN [Concomitant]
  7. CELEXA [Concomitant]
  8. LASIX [Concomitant]
  9. VYTORIN [Concomitant]
  10. MINOXIDIL [Concomitant]

REACTIONS (5)
  - ARTHRITIS [None]
  - ALOPECIA [None]
  - ADVERSE DRUG REACTION [None]
  - OEDEMA PERIPHERAL [None]
  - JOINT SWELLING [None]
